FAERS Safety Report 4887459-0 (Version None)
Quarter: 2006Q1

REPORT INFORMATION
  Report Type: 
  Country: None (occurrence: None)
  Receive Date: 20060118
  Receipt Date: 20050109
  Transmission Date: 20060701
  Serious: Yes (Life-Threatening, Hospitalization)
  Sender: FDA-Public Use
  Company Number: 2006-136908-NL

PATIENT
  Age: 83 Year
  Sex: Male

DRUGS (8)
  1. MIRTAZAPINE [Suspect]
     Indication: DEPRESSION
     Dosage: 15 MG, ORAL
     Route: 048
     Dates: start: 20051118, end: 20051209
  2. SIMVASTATIN [Concomitant]
  3. THIAMINE [Concomitant]
  4. SERETIDE DISKUS [Concomitant]
  5. ACETYLSALICYLIC ACID SRT [Concomitant]
  6. SALBUTAMOL [Concomitant]
  7. DIAZEPAM [Concomitant]
  8. TIOTROPIUM BROMIDE [Concomitant]

REACTIONS (1)
  - INAPPROPRIATE ANTIDIURETIC HORMONE SECRETION [None]
